FAERS Safety Report 8327152-5 (Version None)
Quarter: 2012Q2

REPORT INFORMATION
  Report Type: 
  Country: None (occurrence: None)
  Receive Date: 20120501
  Receipt Date: 20120420
  Transmission Date: 20120825
  Serious: Yes (Other)
  Sender: FDA-Public Use
  Company Number: LB-BAXTER-2012BAX003580

PATIENT
  Sex: Male
  Weight: 10 kg

DRUGS (12)
  1. CYCLOPHOSPHAMIDE [Suspect]
     Indication: NEPHROPATHY
     Dosage: 230 MG DILUTED IN 125 ML OF NS 0.45%
     Route: 042
     Dates: start: 20120413
  2. RENITEC                            /00574902/ [Concomitant]
     Route: 048
  3. BACTRIM [Concomitant]
     Indication: ANTIBIOTIC PROPHYLAXIS
     Dosage: 4 ML X 1/DAY
     Route: 048
     Dates: start: 20120317
  4. DIANEAL PD1 GLUCOSE 1,36% [Suspect]
     Route: 033
     Dates: start: 20120313
  5. RANIMED [Concomitant]
     Route: 048
  6. NICARDIPINE HYDROCHLORIDE [Concomitant]
     Indication: HYPERTENSION
     Route: 042
     Dates: start: 20120303
  7. LASIX [Concomitant]
     Indication: DIURETIC THERAPY
     Dosage: 2-4 MG/KG
     Route: 048
     Dates: start: 20120303
  8. CALTRATE + VITAMIN D [Concomitant]
     Dosage: 1 CAP
     Route: 048
  9. ALFACALCIDOL [Concomitant]
     Dosage: 2 DROPS (2 UG/ML)
     Route: 048
  10. PREDNISONE [Concomitant]
     Route: 048
  11. DIANEAL PD4 GLUCOSE 2,27% [Suspect]
     Route: 033
     Dates: start: 20120313
  12. TRANDATE [Concomitant]
     Route: 048

REACTIONS (1)
  - VASCULAR PURPURA [None]
